FAERS Safety Report 7004260-2 (Version None)
Quarter: 2010Q3

REPORT INFORMATION
  Report Type: 
  Country: None (occurrence: None)
  Receive Date: 20100920
  Receipt Date: 20100209
  Transmission Date: 20110219
  Serious: No
  Sender: FDA-Public Use
  Company Number: US-WYE-H13594610

PATIENT
  Sex: Female
  Weight: 63.11 kg

DRUGS (4)
  1. PRISTIQ [Suspect]
     Indication: DEPRESSION
     Route: 048
     Dates: start: 20100101
  2. DIGOXIN [Concomitant]
  3. BUPROPION HYDROCHLORIDE [Concomitant]
  4. ATENOLOL [Concomitant]

REACTIONS (3)
  - RASH [None]
  - VISION BLURRED [None]
  - YAWNING [None]
